FAERS Safety Report 6447538-3 (Version None)
Quarter: 2009Q4

REPORT INFORMATION
  Report Type: 
  Country: None (occurrence: None)
  Receive Date: 20091119
  Receipt Date: 20090427
  Transmission Date: 20100525
  Serious: Yes (Hospitalization, Other)
  Sender: FDA-Public Use
  Company Number: US-AMGEN-COG338599

PATIENT
  Sex: Male

DRUGS (2)
  1. ENBREL [Suspect]
     Indication: RHEUMATOID ARTHRITIS
     Route: 058
     Dates: start: 19990101
  2. METHOTREXATE [Concomitant]

REACTIONS (6)
  - BASAL CELL CARCINOMA [None]
  - IMPAIRED HEALING [None]
  - INJECTION SITE PAIN [None]
  - MALIGNANT MELANOMA [None]
  - MUSCULOSKELETAL STIFFNESS [None]
  - SQUAMOUS CELL CARCINOMA [None]
